FAERS Safety Report 7078262-4 (Version None)
Quarter: 2010Q4

REPORT INFORMATION
  Report Type: 
  Country: None (occurrence: None)
  Receive Date: 20101101
  Receipt Date: 20101101
  Transmission Date: 20110411
  Serious: No
  Sender: FDA-Public Use
  Company Number: None

PATIENT
  Sex: Female

DRUGS (6)
  1. COPAXONE [Suspect]
     Dosage: 20 MG/ML INJECT 20 MG (1 ML) SUBCUTANEOUS DAILY AS DIRECTED
     Route: 058
  2. EFFEXOR XR [Concomitant]
  3. LOMOTIL [Concomitant]
  4. PREMARIN [Concomitant]
  5. NEURONTIN [Concomitant]
  6. HYDROCODONE/SOL APAP [Concomitant]

REACTIONS (1)
  - SYSTEMIC LUPUS ERYTHEMATOSUS [None]
